FAERS Safety Report 5463510-4 (Version None)
Quarter: 2007Q3

REPORT INFORMATION
  Report Type: 
  Country: None (occurrence: None)
  Receive Date: 20070920
  Receipt Date: 20070911
  Transmission Date: 20080115
  Serious: Yes (Other)
  Sender: FDA-Public Use
  Company Number: GB-PFIZER INC-2007075974

PATIENT
  Age: 56 Year
  Sex: Female
  Weight: 90 kg

DRUGS (7)
  1. CHAMPIX [Suspect]
     Indication: SMOKING CESSATION THERAPY
     Route: 048
     Dates: start: 20070628, end: 20070822
  2. AMITRIPTYLINE HCL [Concomitant]
     Route: 048
  3. ASPIRIN [Concomitant]
     Route: 048
  4. CO-CODAMOL [Concomitant]
     Indication: BACK PAIN
     Route: 048
  5. ESTRADERM [Concomitant]
     Indication: MENOPAUSE
     Dosage: TEXT:100UG
  6. METFORMIN HCL [Concomitant]
     Indication: DIABETES MELLITUS
     Route: 048
  7. TRAMADOL HCL [Concomitant]
     Route: 048

REACTIONS (3)
  - CHANGE OF BOWEL HABIT [None]
  - DEPRESSED MOOD [None]
  - HYPERHIDROSIS [None]
